FAERS Safety Report 9331886 (Version 1)
Quarter: 2013Q2

REPORT INFORMATION
  Report Type: Spontaneous
  Country: GB (occurrence: None)
  Receive Date: 20130603
  Receipt Date: 20130603
  Transmission Date: 20140414
  Serious: Yes (Death)
  Sender: FDA-Public Use
  Company Number: GB-022886

PATIENT
  Age: 3 Year
  Sex: Male

DRUGS (3)
  1. BUSULFAN [Suspect]
     Indication: FAMILIAL HAEMOPHAGOCYTIC LYMPHOHISTIOCYTOSIS
  2. ANTITHYMOCYTE GLOBULIN (ANTITHYMOCYTE GLOBULIN) [Concomitant]
  3. CYCLOPHOSPHAMIDE (CYCLOPHOSPHAMIDE) [Concomitant]

REACTIONS (3)
  - Multi-organ failure [None]
  - Nephropathy toxic [None]
  - Venoocclusive disease [None]
